FAERS Safety Report 19952022 (Version 2)
Quarter: 2021Q4

REPORT INFORMATION
  Report Type: Spontaneous
  Country: ES (occurrence: ES)
  Receive Date: 20211013
  Receipt Date: 20211021
  Transmission Date: 20220303
  Serious: Yes (Hospitalization)
  Sender: FDA-Public Use
  Company Number: ES-TEVA-2021-ES-1963770

PATIENT
  Age: 10 Year
  Sex: Male

DRUGS (10)
  1. TACROLIMUS [Interacting]
     Active Substance: TACROLIMUS
     Indication: Immunosuppressant drug therapy
     Dosage: 2 MILLIGRAM DAILY;
     Route: 065
  2. TACROLIMUS [Interacting]
     Active Substance: TACROLIMUS
     Dosage: 1.6 MILLIGRAM DAILY;
     Route: 065
  3. TACROLIMUS [Interacting]
     Active Substance: TACROLIMUS
     Dosage: 1.2 MILLIGRAM DAILY;
     Route: 065
  4. TACROLIMUS [Interacting]
     Active Substance: TACROLIMUS
     Dosage: .8 MILLIGRAM DAILY;
     Route: 065
  5. VORICONAZOLE [Interacting]
     Active Substance: VORICONAZOLE
     Indication: Cryptococcosis
     Dosage: 9 MG/KG DAILY;
     Route: 048
  6. SIROLIMUS [Interacting]
     Active Substance: SIROLIMUS
     Indication: Immunosuppressant drug therapy
     Dosage: 1.4 MILLIGRAM DAILY;
     Route: 065
  7. SIROLIMUS [Interacting]
     Active Substance: SIROLIMUS
     Dosage: .8 MILLIGRAM DAILY;
     Route: 065
  8. SIROLIMUS [Interacting]
     Active Substance: SIROLIMUS
     Dosage: .6 MILLIGRAM DAILY;
     Route: 065
  9. SIROLIMUS [Interacting]
     Active Substance: SIROLIMUS
     Dosage: .2 MILLIGRAM DAILY;
     Route: 065
  10. COTRIMOXAZOLE [Concomitant]
     Active Substance: SULFAMETHOXAZOLE\TRIMETHOPRIM
     Indication: Prophylaxis
     Route: 065

REACTIONS (5)
  - Cryptococcosis [Recovered/Resolved]
  - Gastrointestinal disorder [Recovering/Resolving]
  - Visual impairment [Recovering/Resolving]
  - Blood creatinine increased [Recovered/Resolved]
  - Drug interaction [Unknown]
